FAERS Safety Report 14213023 (Version 2)
Quarter: 2017Q4

REPORT INFORMATION
  Report Type: Report from Study
  Country: None (occurrence: CH)
  Receive Date: 20171121
  Receipt Date: 20171223
  Transmission Date: 20180321
  Serious: Yes (Hospitalization, Other)
  Sender: FDA-Public Use
  Company Number: CH-ABBVIE-17K-151-2166283-00

PATIENT
  Age: 78 Year
  Sex: Male

DRUGS (3)
  1. MARCOUMAR [Concomitant]
     Active Substance: PHENPROCOUMON
     Indication: PRODUCT USED FOR UNKNOWN INDICATION
  2. DUODOPA [Suspect]
     Active Substance: CARBIDOPA\LEVODOPA
     Indication: PARKINSON^S DISEASE
     Dosage: MD: 8.0ML, CRD: 4.3ML/H, CRN: 2.9ML/H, ED: 4.2ML, 24H THERAPY
     Route: 050
     Dates: start: 20091207
  3. CLEXANE [Concomitant]
     Active Substance: ENOXAPARIN SODIUM
     Indication: PRODUCT USED FOR UNKNOWN INDICATION

REACTIONS (20)
  - Basosquamous carcinoma [Unknown]
  - Craniocerebral injury [Unknown]
  - Actinic keratosis [Unknown]
  - Chills [Unknown]
  - Constipation [Unknown]
  - Disorientation [Unknown]
  - Bronchitis [Unknown]
  - Concussion [Unknown]
  - Productive cough [Unknown]
  - Pneumonia [Unknown]
  - Pruritus [Unknown]
  - Cataract [Unknown]
  - Speech disorder [Unknown]
  - Dysphagia [Unknown]
  - Tremor [Unknown]
  - Memory impairment [Unknown]
  - Basal cell carcinoma [Unknown]
  - Paralysis [Unknown]
  - Gait disturbance [Unknown]
  - Diarrhoea [Unknown]

NARRATIVE: CASE EVENT DATE: 20160904
